FAERS Safety Report 5699967-3 (Version None)
Quarter: 2008Q2

REPORT INFORMATION
  Report Type: 
  Country: None (occurrence: None)
  Receive Date: 20080410
  Receipt Date: 20080314
  Transmission Date: 20081010
  Serious: Yes (Life-Threatening, Hospitalization, Other)
  Sender: FDA-Public Use
  Company Number: AU-AVENTIS-200812427GDDC

PATIENT
  Age: 72 Year
  Sex: Male

DRUGS (2)
  1. LANTUS [Suspect]
     Route: 058
     Dates: start: 20070731
  2. AUTOPEN INSULIN INJECTION PEN [Suspect]

REACTIONS (2)
  - MYOCARDIAL INFARCTION [None]
  - PULMONARY OEDEMA [None]
